FAERS Safety Report 23634803 (Version 1)
Quarter: 2024Q1

REPORT INFORMATION
  Report Type: Spontaneous
  Country: VN (occurrence: None)
  Receive Date: 20240315
  Receipt Date: 20240315
  Transmission Date: 20240410
  Serious: Yes (Other)
  Sender: FDA-Public Use
  Company Number: VN-ROCHE-3511640

PATIENT
  Age: 46 Month
  Sex: Male

DRUGS (1)
  1. HEMLIBRA [Suspect]
     Active Substance: EMICIZUMAB-KXWH
     Indication: Factor VIII deficiency
     Route: 065
     Dates: start: 20230420

REACTIONS (8)
  - Cerebral haemorrhage [Unknown]
  - Pruritus [Unknown]
  - Pyrexia [Unknown]
  - Injection site swelling [Unknown]
  - Multiple injuries [Unknown]
  - Epistaxis [Unknown]
  - Pain [Unknown]
  - Strabismus [Unknown]
